FAERS Safety Report 13176947 (Version 2)
Quarter: 2017Q2

REPORT INFORMATION
  Report Type: Report from Study
  Country: US (occurrence: US)
  Receive Date: 20170201
  Receipt Date: 20170602
  Transmission Date: 20170830
  Serious: Yes (Other)
  Sender: FDA-Public Use
  Company Number: US-VIFOR (INTERNATIONAL) INC.-VIT-2017-00801

PATIENT
  Age: 65 Year
  Sex: Male
  Weight: 68 kg

DRUGS (4)
  1. AMLODIPINE [Concomitant]
     Active Substance: AMLODIPINE BESYLATE
  2. ERGOCALCIFEROL. [Concomitant]
     Active Substance: ERGOCALCIFEROL
  3. INSULIN [Concomitant]
     Active Substance: INSULIN NOS
  4. VELTASSA [Suspect]
     Active Substance: PATIROMER
     Indication: RENAL FAILURE
     Route: 048
     Dates: start: 20161222

REACTIONS (2)
  - Arteriovenous fistula operation [Recovered/Resolved with Sequelae]
  - Off label use [Not Recovered/Not Resolved]

NARRATIVE: CASE EVENT DATE: 20170120
